FAERS Safety Report 6401462-0 (Version None)
Quarter: 2009Q4

REPORT INFORMATION
  Report Type: 
  Country: None (occurrence: None)
  Receive Date: 20091015
  Receipt Date: 20091008
  Transmission Date: 20100525
  Serious: Yes (Death, Hospitalization)
  Sender: FDA-Public Use
  Company Number: BR-BRISTOL-MYERS SQUIBB COMPANY-14720973

PATIENT
  Age: 60 Year
  Sex: Male

DRUGS (8)
  1. ORENCIA [Suspect]
     Indication: RHEUMATOID ARTHRITIS
     Route: 042
     Dates: start: 20050427, end: 20090629
  2. PREDNISONE [Suspect]
     Dosage: 7.5 MG
  3. HYDROCHLOROTHIAZIDE [Concomitant]
  4. OMEPRAZOLE [Concomitant]
  5. DOXAZOSIN MESILATE [Concomitant]
  6. CAPTOPRIL [Concomitant]
  7. VITAMIN D3 [Concomitant]
  8. CALCIUM [Concomitant]

REACTIONS (4)
  - INFLUENZA [None]
  - PNEUMONIA [None]
  - PULMONARY MYCOSIS [None]
  - SEPSIS [None]
